FAERS Safety Report 14455051 (Version 2)
Quarter: 2018Q1

REPORT INFORMATION
  Report Type: Report from Study
  Country: US (occurrence: US)
  Receive Date: 20180129
  Receipt Date: 20180301
  Transmission Date: 20180509
  Serious: Yes (Hospitalization)
  Sender: FDA-Public Use
  Company Number: US-ACTELION-A-NJ2018-166077

PATIENT
  Age: 59 Year
  Sex: Male
  Weight: 136.5 kg

DRUGS (3)
  1. OPSUMIT [Suspect]
     Active Substance: MACITENTAN
     Indication: PULMONARY HYPERTENSION
     Dosage: 10 MG, QD
     Route: 048
  2. ADEMPAS [Concomitant]
     Active Substance: RIOCIGUAT
  3. ELIQUIS [Concomitant]
     Active Substance: APIXABAN

REACTIONS (8)
  - Dysphagia [Unknown]
  - Chest pain [Unknown]
  - Aptyalism [Unknown]
  - Headache [Unknown]
  - Dry mouth [Unknown]
  - Oedema peripheral [Not Recovered/Not Resolved]
  - Weight increased [Unknown]
  - Cerebrovascular accident [Unknown]

NARRATIVE: CASE EVENT DATE: 201712
